FAERS Safety Report 5232731-8 (Version None)
Quarter: 2007Q1

REPORT INFORMATION
  Report Type: 
  Country: None (occurrence: None)
  Receive Date: 20070206
  Receipt Date: 20070206
  Transmission Date: 20070707
  Serious: No
  Sender: FDA-Public Use
  Company Number: None

PATIENT
  Age: 32 Year
  Sex: Female
  Weight: 113.3993 kg

DRUGS (1)
  1. CHANTRIX  1MG [Suspect]
     Indication: SMOKING CESSATION THERAPY
     Dosage: 1MG  BID PO
     Route: 048

REACTIONS (3)
  - ABNORMAL DREAMS [None]
  - ANXIETY [None]
  - POOR QUALITY SLEEP [None]
